FAERS Safety Report 5834895-1 (Version None)
Quarter: 2008Q3

REPORT INFORMATION
  Report Type: 
  Country: None (occurrence: None)
  Receive Date: 20080806
  Receipt Date: 20080801
  Transmission Date: 20090109
  Serious: Yes (Hospitalization, Other)
  Sender: FDA-Public Use
  Company Number: US-BRISTOL-MYERS SQUIBB COMPANY-14279186

PATIENT
  Age: 55 Year
  Sex: Female

DRUGS (7)
  1. PACLITAXEL [Suspect]
     Indication: BREAST CANCER
     Route: 042
  2. CYCLOPHOSPHAMIDE [Suspect]
     Indication: BREAST CANCER
     Route: 042
  3. EPIRUBICIN [Suspect]
     Indication: BREAST CANCER
     Route: 042
  4. FLUOROURACIL [Suspect]
     Indication: BREAST CANCER
     Route: 042
  5. DEXAMETHASONE [Concomitant]
     Indication: PREMEDICATION
  6. ONDANSETRON [Concomitant]
     Indication: PREMEDICATION
  7. LORAZEPAM [Concomitant]
     Indication: PREMEDICATION

REACTIONS (8)
  - BACK PAIN [None]
  - FATIGUE [None]
  - MUSCULOSKELETAL PAIN [None]
  - MYALGIA [None]
  - NAUSEA [None]
  - PARAESTHESIA [None]
  - PNEUMONIA [None]
  - SICKLE CELL ANAEMIA WITH CRISIS [None]
